FAERS Safety Report 4944700-3 (Version None)
Quarter: 2006Q1

REPORT INFORMATION
  Report Type: 
  Country: None (occurrence: None)
  Receive Date: 20060124
  Receipt Date: 20051128
  Transmission Date: 20060701
  Serious: Yes (Hospitalization)
  Sender: FDA-Public Use
  Company Number: 2005BH003165

PATIENT
  Sex: 0

DRUGS (1)
  1. EXTRANEAL [Suspect]
     Dosage: IP    2-3 WEEK
     Route: 033

REACTIONS (1)
  - RASH GENERALISED [None]
